FAERS Safety Report 5745220-9 (Version None)
Quarter: 2008Q2

REPORT INFORMATION
  Report Type: 
  Country: None (occurrence: None)
  Receive Date: 20080521
  Receipt Date: 20080515
  Transmission Date: 20081010
  Serious: Yes (Other)
  Sender: FDA-Public Use
  Company Number: B0360252A

PATIENT
  Sex: Female

DRUGS (7)
  1. PAROXETINE HCL [Suspect]
     Route: 065
     Dates: start: 19960926
  2. ZYBAN [Concomitant]
     Dates: start: 20001201
  3. LOFEPRAMINE [Concomitant]
     Dates: end: 19960926
  4. ZIMOVANE [Concomitant]
     Dates: start: 19961021
  5. PROPRANOLOL [Concomitant]
     Dates: start: 20021002
  6. BUSPAR [Concomitant]
     Dosage: 10MG PER DAY
     Dates: start: 20020829
  7. DOTHIEPIN HYDROCHLORIDE [Concomitant]
     Dates: start: 20030924

REACTIONS (9)
  - CRYING [None]
  - DEPRESSION [None]
  - DRUG WITHDRAWAL SYNDROME [None]
  - IRRITABILITY [None]
  - MORBID THOUGHTS [None]
  - PARAESTHESIA [None]
  - PARAESTHESIA ORAL [None]
  - SUICIDAL IDEATION [None]
  - TREMOR [None]
